FAERS Safety Report 10029841 (Version 1)
Quarter: 2014Q1

REPORT INFORMATION
  Report Type: Spontaneous
  Country: US (occurrence: None)
  Receive Date: 20140320
  Receipt Date: 20140320
  Transmission Date: 20141002
  Serious: Yes (Hospitalization)
  Sender: FDA-Public Use
  Company Number: 2247258

PATIENT
  Age: 11 Year
  Sex: Female
  Weight: 41 kg

DRUGS (6)
  1. DEXMEDETOMIDINE HYDROCHLORIDE) [Suspect]
     Indication: SEDATION
     Route: 045
  2. ALBUTEROL /00139501/ [Concomitant]
  3. BUDESONIDE [Concomitant]
  4. SINGULAIR [Concomitant]
  5. CETIRIZINE [Concomitant]
  6. NITROFURANTOIN [Concomitant]

REACTIONS (2)
  - Syncope [None]
  - Sinus bradycardia [None]
